FAERS Safety Report 9931891 (Version 2)
Quarter: 2014Q1

REPORT INFORMATION
  Report Type: Spontaneous
  Country: US (occurrence: None)
  Receive Date: 20140226
  Receipt Date: 20140324
  Transmission Date: 20141002
  Serious: Yes (Hospitalization)
  Sender: FDA-Public Use
  Company Number: IMP_07479_2014

PATIENT
  Age: 26 Year
  Sex: Female

DRUGS (5)
  1. OPANA [Suspect]
     Indication: PRODUCT USED FOR UNKNOWN INDICATION
     Dosage: DF
     Route: 042
  2. 9-TETRAHYDROCANNABINOL [Suspect]
     Indication: PRODUCT USED FOR UNKNOWN INDICATION
     Dosage: DF
  3. OPIOIDS [Suspect]
     Indication: PRODUCT USED FOR UNKNOWN INDICATION
     Dosage: DF
  4. OXYCODONE [Suspect]
     Indication: PRODUCT USED FOR UNKNOWN INDICATION
     Dosage: DF
  5. BENZODIAZEPINE RELATED DRUGS [Suspect]
     Indication: PRODUCT USED FOR UNKNOWN INDICATION
     Dosage: DF

REACTIONS (19)
  - Refusal of treatment by patient [None]
  - Thrombotic thrombocytopenic purpura [None]
  - Haemoglobin decreased [None]
  - Alanine aminotransferase increased [None]
  - Aspartate aminotransferase increased [None]
  - Pancreatitis [None]
  - Hepatitis C [None]
  - Headache [None]
  - Blood lactate dehydrogenase increased [None]
  - Grand mal convulsion [None]
  - Haptoglobin decreased [None]
  - Postictal state [None]
  - Tongue biting [None]
  - Nystagmus [None]
  - Drug screen positive [None]
  - Drug abuse [None]
  - Cerebrovascular accident [None]
  - Blood urea increased [None]
  - Therapeutic response decreased [None]
